FAERS Safety Report 6662232-1 (Version None)
Quarter: 2010Q1

REPORT INFORMATION
  Report Type: 
  Country: None (occurrence: None)
  Receive Date: 20100331
  Receipt Date: 20100324
  Transmission Date: 20100710
  Serious: Yes (Death)
  Sender: FDA-Public Use
  Company Number: GXKR2009DK07838

PATIENT
  Sex: Male
  Weight: 2450 kg

DRUGS (2)
  1. FLUOXETINE [Suspect]
     Route: 064
  2. FLUOXETINE [Suspect]

REACTIONS (4)
  - CARDIOVASCULAR DISORDER [None]
  - CEREBRAL DISORDER [None]
  - DRUG EXPOSURE DURING PREGNANCY [None]
  - DRUG EXPOSURE VIA BREAST MILK [None]
